FAERS Safety Report 17363109 (Version 1)
Quarter: 2020Q1

REPORT INFORMATION
  Report Type: Spontaneous
  Country: ES (occurrence: ES)
  Receive Date: 20200203
  Receipt Date: 20200203
  Transmission Date: 20200409
  Serious: Yes (Other)
  Sender: FDA-Public Use
  Company Number: ES-PFM-2020-00939

PATIENT

DRUGS (10)
  1. TAXOL [Suspect]
     Active Substance: PACLITAXEL
     Indication: PANCREATIC CARCINOMA
     Dosage: UNK UNK, UNKNOWN
     Route: 065
  2. LAPATINIB [Suspect]
     Active Substance: LAPATINIB
     Indication: PANCREATIC CARCINOMA
     Dosage: 2000/1250 MG
     Route: 065
  3. ABRAXANE [Suspect]
     Active Substance: PACLITAXEL
     Indication: PANCREATIC CARCINOMA
     Dosage: UNK UNK, UNKNOWN
     Route: 065
  4. TAMOXIFEN [Suspect]
     Active Substance: TAMOXIFEN
     Indication: PANCREATIC CARCINOMA
     Dosage: UNK UNK, UNKNOWN
     Route: 065
  5. VINORELBINE TARTRATE. [Suspect]
     Active Substance: VINORELBINE TARTRATE
     Indication: OFF LABEL USE
  6. VINORELBINE TARTRATE. [Suspect]
     Active Substance: VINORELBINE TARTRATE
     Indication: PRODUCT USE IN UNAPPROVED INDICATION
  7. TRASTUZUMAB. [Suspect]
     Active Substance: TRASTUZUMAB
     Indication: PANCREATIC CARCINOMA
     Dosage: UNK UNK, UNKNOWN
     Route: 065
  8. CAPECITABINE. [Suspect]
     Active Substance: CAPECITABINE
     Indication: PANCREATIC CARCINOMA
     Dosage: STRENGTH 2000/1250 MG
     Route: 048
  9. VINORELBINE TARTRATE. [Suspect]
     Active Substance: VINORELBINE TARTRATE
     Indication: PANCREATIC CARCINOMA
     Dosage: UNK DF, UNK
     Route: 065
  10. ANASTROZOL [Suspect]
     Active Substance: ANASTROZOLE
     Indication: PANCREATIC CARCINOMA
     Dosage: UNK DF, UNK
     Route: 065

REACTIONS (5)
  - Mucosal inflammation [Unknown]
  - Neutropenia [Unknown]
  - Product use in unapproved indication [Unknown]
  - Polymyositis [Unknown]
  - Off label use [Unknown]

NARRATIVE: CASE EVENT DATE: 2010
